FAERS Safety Report 6087168-9 (Version None)
Quarter: 2009Q1

REPORT INFORMATION
  Report Type: 
  Country: None (occurrence: None)
  Receive Date: 20090223
  Receipt Date: 20090212
  Transmission Date: 20090719
  Serious: Yes (Death)
  Sender: FDA-Public Use
  Company Number: ES-MERCK-0902ESP00028

PATIENT
  Age: 74 Year
  Sex: Female

DRUGS (8)
  1. COZAAR [Suspect]
     Indication: HYPERTENSION
     Route: 048
     Dates: start: 20070130
  2. METFORMIN [Suspect]
     Indication: TYPE 2 DIABETES MELLITUS
     Route: 048
     Dates: start: 20080515
  3. TORSEMIDE [Suspect]
     Indication: CARDIAC FAILURE CONGESTIVE
     Route: 048
     Dates: start: 20080130
  4. AMLODIPINE [Suspect]
     Route: 048
     Dates: start: 20070130
  5. SIMVASTATIN [Suspect]
     Indication: DYSLIPIDAEMIA
     Route: 048
     Dates: start: 20080515, end: 20081027
  6. ASPIRIN [Suspect]
     Route: 048
     Dates: start: 20070130, end: 20081027
  7. TROXERUTIN [Suspect]
     Indication: VARICOSE VEIN
     Route: 048
     Dates: start: 20080229, end: 20081027
  8. ALLOPURINOL [Suspect]
     Indication: HYPERURICAEMIA
     Route: 048
     Dates: start: 20080723, end: 20081027

REACTIONS (1)
  - APLASTIC ANAEMIA [None]
